FAERS Safety Report 6107275-1 (Version None)
Quarter: 2009Q1

REPORT INFORMATION
  Report Type: 
  Country: None (occurrence: None)
  Receive Date: 20090309
  Receipt Date: 20090304
  Transmission Date: 20090719
  Serious: Yes (Hospitalization)
  Sender: FDA-Public Use
  Company Number: AU-BRISTOL-MYERS SQUIBB COMPANY-14531172

PATIENT
  Age: 73 Year
  Sex: Female

DRUGS (5)
  1. KARVEA [Suspect]
     Dosage: FORMULATION TABLET
     Route: 048
  2. PLAVIX [Suspect]
     Dosage: FORMULATION TABLET
     Route: 048
     Dates: start: 20020601
  3. ATORVASTATIN [Suspect]
     Dosage: FORMULATION TABLET
     Route: 048
  4. BICOR [Suspect]
     Dosage: FORMULATION TABLET
     Route: 048
  5. CLONIDINE HCL [Suspect]
     Dosage: FORMULATION TABLET
     Route: 048

REACTIONS (3)
  - BLOOD PRESSURE FLUCTUATION [None]
  - HYPERTENSION [None]
  - VISION BLURRED [None]
